FAERS Safety Report 5126562-7 (Version None)
Quarter: 2006Q4

REPORT INFORMATION
  Report Type: 
  Country: None (occurrence: None)
  Receive Date: 20061010
  Receipt Date: 20061002
  Transmission Date: 20070319
  Serious: Yes (Other)
  Sender: FDA-Public Use
  Company Number: 2006118525

PATIENT
  Age: 22 Year
  Sex: Male
  Weight: 68.0396 kg

DRUGS (1)
  1. BENADRYL [Suspect]
     Indication: ARTHROPOD BITE
     Dosage: 2 TABS TWICE IN ONE DAY, ORAL
     Route: 048
     Dates: start: 20060701, end: 20060701

REACTIONS (1)
  - PARANOIA [None]
